FAERS Safety Report 10007085 (Version 3)
Quarter: 2015Q3

REPORT INFORMATION
  Report Type: Spontaneous
  Country: US (occurrence: US)
  Receive Date: 20140313
  Receipt Date: 20150813
  Transmission Date: 20151125
  Serious: Yes (Other)
  Sender: FDA-Public Use
  Company Number: US-GILEAD-2012-0066087

PATIENT
  Age: 89 Year
  Sex: Female

DRUGS (2)
  1. LETAIRIS [Suspect]
     Active Substance: AMBRISENTAN
     Indication: SJOGREN^S SYNDROME
  2. LETAIRIS [Suspect]
     Active Substance: AMBRISENTAN
     Indication: PULMONARY ARTERIAL HYPERTENSION
     Dosage: 5 MG, QD
     Route: 048
     Dates: start: 20121114

REACTIONS (9)
  - Unevaluable event [Unknown]
  - Dizziness [Unknown]
  - No therapeutic response [Unknown]
  - Increased viscosity of upper respiratory secretion [Unknown]
  - Oedema [Unknown]
  - Epistaxis [Unknown]
  - Dyspnoea [Unknown]
  - Nasal congestion [Unknown]
  - Presyncope [Unknown]
